FAERS Safety Report 21631830 (Version 5)
Quarter: 2024Q4

REPORT INFORMATION
  Report Type: Report from Study
  Country: CA (occurrence: CA)
  Receive Date: 20221123
  Receipt Date: 20241028
  Transmission Date: 20250114
  Serious: No
  Sender: ROCHE
  Company Number: CA-ROCHE-3210537

PATIENT
  Sex: Female

DRUGS (6)
  1. OCREVUS [Suspect]
     Active Substance: OCRELIZUMAB
     Indication: Relapsing-remitting multiple sclerosis
     Dosage: 300 MG AT DAY 0 AND 14, THEN 600 MG EVERY 6 MONTH
     Route: 042
     Dates: start: 20221020
  2. DIPHENHYDRAMINE [Concomitant]
     Active Substance: DIPHENHYDRAMINE
     Indication: Premedication
     Dosage: PO/IV 30-60 MIN PRIOR TO EACHINFUSION
  3. METHYLPREDNISOLONE [Concomitant]
     Active Substance: METHYLPREDNISOLONE
     Indication: Premedication
     Dosage: APPROXIMATELY 30 MINS PRIOR TO EACH INFUSION
     Route: 042
  4. ACETAMINOPHEN [Concomitant]
     Active Substance: ACETAMINOPHEN
     Indication: Premedication
     Dosage: PO 30-60MG PRIOR TO EACH INFUSION
     Route: 048
  5. GRAVOL [Concomitant]
     Active Substance: DIMENHYDRINATE
     Indication: Nausea
     Dosage: 25-50MG PO OR IV
  6. GRAVOL [Concomitant]
     Active Substance: DIMENHYDRINATE
     Dosage: PRN

REACTIONS (4)
  - Nasopharyngitis [Unknown]
  - Oral herpes [Recovering/Resolving]
  - Illness [Unknown]
  - Off label use [Unknown]
